FAERS Safety Report 19027913 (Version 1)
Quarter: 2021Q1

REPORT INFORMATION
  Report Type: Report from Study
  Country: BR (occurrence: BR)
  Receive Date: 20210318
  Receipt Date: 20210318
  Transmission Date: 20210420
  Serious: Yes (Other)
  Sender: FDA-Public Use
  Company Number: BR-TAKEDA-BR202025542

PATIENT
  Sex: Male
  Weight: 21 kg

DRUGS (2)
  1. IDURSULFASE [Suspect]
     Active Substance: IDURSULFASE
     Indication: MUCOPOLYSACCHARIDOSIS II
     Dosage: 5.25 ML/ (0.5MG/KG), 1X/WEEK
     Route: 065
  2. IDURSULFASE [Suspect]
     Active Substance: IDURSULFASE
     Dosage: 2 DOSAGE FORM (VIALS), 1/WEEK
     Route: 042

REACTIONS (8)
  - Ear pain [Unknown]
  - Cardiomegaly [Unknown]
  - Pain in extremity [Unknown]
  - Inappropriate schedule of product administration [Recovered/Resolved]
  - Erythema [Recovered/Resolved]
  - Pyrexia [Unknown]
  - Application site oedema [Unknown]
  - Limb deformity [Unknown]
